FAERS Safety Report 15749216 (Version 1)
Quarter: 2018Q4

REPORT INFORMATION
  Report Type: Spontaneous
  Country: US (occurrence: US)
  Receive Date: 20181205
  Receipt Date: 20181205
  Transmission Date: 20190205
  Serious: No
  Sender: FDA-Public Use
  Company Number: None

PATIENT
  Age: 56 Year
  Sex: Female

DRUGS (1)
  1. ESBRIET [Suspect]
     Active Substance: PIRFENIDONE
     Dates: start: 201811

REACTIONS (3)
  - Depressed mood [None]
  - Productive cough [None]
  - Fatigue [None]

NARRATIVE: CASE EVENT DATE: 20181113
